FAERS Safety Report 5390164-8 (Version None)
Quarter: 2007Q3

REPORT INFORMATION
  Report Type: 
  Country: None (occurrence: None)
  Receive Date: 20070718
  Receipt Date: 20070712
  Transmission Date: 20080115
  Serious: Yes (Hospitalization)
  Sender: FDA-Public Use
  Company Number: PL-GENENTECH-244467

PATIENT
  Sex: Female
  Weight: 110 kg

DRUGS (12)
  1. XOLAIR [Suspect]
     Indication: ASTHMA
     Dosage: 300 MG, 1/MONTH
     Route: 023
     Dates: start: 20050401
  2. METHYLPREDNISOLONE [Concomitant]
     Indication: DRUG USE FOR UNKNOWN INDICATION
  3. SUCRALFATE [Concomitant]
     Indication: DRUG USE FOR UNKNOWN INDICATION
  4. POLPRAZOL [Concomitant]
     Indication: DRUG USE FOR UNKNOWN INDICATION
  5. SIMVASTATIN [Concomitant]
     Indication: DRUG USE FOR UNKNOWN INDICATION
  6. ISOPTIN [Concomitant]
     Indication: DRUG USE FOR UNKNOWN INDICATION
  7. RYTHMOL [Concomitant]
     Indication: DRUG USE FOR UNKNOWN INDICATION
  8. SPIRONOL [Concomitant]
     Indication: DRUG USE FOR UNKNOWN INDICATION
  9. LASIX [Concomitant]
     Indication: DRUG USE FOR UNKNOWN INDICATION
  10. FORADIL [Concomitant]
     Indication: DRUG USE FOR UNKNOWN INDICATION
  11. ALVESCO [Concomitant]
     Indication: DRUG USE FOR UNKNOWN INDICATION
  12. GLUCOBAY [Concomitant]
     Indication: DRUG USE FOR UNKNOWN INDICATION

REACTIONS (1)
  - DEEP VEIN THROMBOSIS [None]
